FAERS Safety Report 6061998-1 (Version None)
Quarter: 2009Q1

REPORT INFORMATION
  Report Type: 
  Country: None (occurrence: None)
  Receive Date: 20090202
  Receipt Date: 20090127
  Transmission Date: 20090719
  Serious: No
  Sender: FDA-Public Use
  Company Number: US-B.I. PHARMACEUTICALS,INC./RIDGEFIELD-2009-BP-00366BP

PATIENT
  Age: 58 Year
  Sex: Male
  Weight: 120 kg

DRUGS (5)
  1. MIRAPEX [Suspect]
     Indication: RESTLESS LEGS SYNDROME
     Dosage: .25MG
     Dates: end: 20081012
  2. DIOVAN [Concomitant]
     Dosage: 160MG
  3. POTASSIUM CHLORIDE [Concomitant]
     Dosage: 10MEQ
  4. LASIX [Concomitant]
     Dosage: 40MG
  5. DOXAZOSIN MESYLATE [Concomitant]
     Dosage: 1MG
     Route: 048

REACTIONS (4)
  - CONTUSION [None]
  - JOINT INJURY [None]
  - ROAD TRAFFIC ACCIDENT [None]
  - SUDDEN ONSET OF SLEEP [None]
